FAERS Safety Report 22522847 (Version 3)
Quarter: 2025Q1

REPORT INFORMATION
  Report Type: Spontaneous
  Country: US (occurrence: HK)
  Receive Date: 20230605
  Receipt Date: 20250318
  Transmission Date: 20250408
  Serious: Yes (Death, Hospitalization, Other)
  Sender: ENDO
  Company Number: US-ENDO PHARMACEUTICALS INC-2023-002324

PATIENT
  Age: 42 Year
  Sex: Female

DRUGS (1)
  1. KETALAR [Suspect]
     Active Substance: KETAMINE HYDROCHLORIDE
     Indication: Substance use
     Route: 065

REACTIONS (7)
  - Death [Fatal]
  - Cholangitis sclerosing [Unknown]
  - Sepsis [Unknown]
  - Hepatic cirrhosis [Unknown]
  - Chronic kidney disease [Unknown]
  - Hydronephrosis [Unknown]
  - Drug abuse [Unknown]
